FAERS Safety Report 24192989 (Version 1)
Quarter: 2024Q3

REPORT INFORMATION
  Report Type: Spontaneous
  Country: US (occurrence: US)
  Receive Date: 20240809
  Receipt Date: 20240809
  Transmission Date: 20241017
  Serious: Yes (Hospitalization, Other)
  Sender: ZYDUS PHARM
  Company Number: US-CADILA HEALTHCARE LIMITED-US-ZYDUS-110623

PATIENT

DRUGS (4)
  1. METHYLPREDNISOLONE [Suspect]
     Active Substance: METHYLPREDNISOLONE
     Indication: Interstitial lung disease
     Dosage: 10 MILLIGRAM/KILOGRAM,WEEKLY
     Route: 042
  2. PREDNISOLONE [Suspect]
     Active Substance: PREDNISOLONE
     Indication: Interstitial lung disease
     Dosage: 6 MILLIGRAM, DAILY
     Route: 048
  3. HYDROXYCHLOROQUINE [Concomitant]
     Active Substance: HYDROXYCHLOROQUINE
     Indication: Interstitial lung disease
     Dosage: UNK
     Route: 065
  4. AZITHROMYCIN [Concomitant]
     Active Substance: AZITHROMYCIN
     Indication: Interstitial lung disease
     Dosage: UNK, THRICE WEEKLY
     Route: 065

REACTIONS (4)
  - Tracheo-oesophageal fistula [Not Recovered/Not Resolved]
  - Status epilepticus [Unknown]
  - Pneumatosis intestinalis [Unknown]
  - Abscess [Unknown]
